FAERS Safety Report 19578997 (Version 2)
Quarter: 2022Q2

REPORT INFORMATION
  Report Type: Report from Study
  Country: US (occurrence: US)
  Receive Date: 20210720
  Receipt Date: 20220513
  Transmission Date: 20220721
  Serious: No
  Sender: FDA-Public Use
  Company Number: US-TEVA-2021-US-1931944

PATIENT
  Age: 33 Year
  Sex: Male

DRUGS (2)
  1. CLOZAPINE [Suspect]
     Active Substance: CLOZAPINE
     Indication: Schizophrenia
     Dosage: 50 MILLIGRAM DAILY; AT BEDTIME
     Route: 065
     Dates: start: 2021
  2. ABILIFY [Suspect]
     Active Substance: ARIPIPRAZOLE
     Route: 065

REACTIONS (9)
  - Product dose omission issue [Unknown]
  - Tremor [Not Recovered/Not Resolved]
  - Vomiting [Unknown]
  - Hypoaesthesia [Not Recovered/Not Resolved]
  - Adverse event [Unknown]
  - Weight decreased [Not Recovered/Not Resolved]
  - Insomnia [Not Recovered/Not Resolved]
  - Nervousness [Not Recovered/Not Resolved]
  - Paranoia [Not Recovered/Not Resolved]

NARRATIVE: CASE EVENT DATE: 20210101
